FAERS Safety Report 7397084-8 (Version None)
Quarter: 2011Q2

REPORT INFORMATION
  Report Type: 
  Country: None (occurrence: None)
  Receive Date: 20110406
  Receipt Date: 20110401
  Transmission Date: 20111010
  Serious: Yes (Hospitalization)
  Sender: FDA-Public Use
  Company Number: A0833957A

PATIENT
  Age: 51 Year
  Sex: Female

DRUGS (11)
  1. LASIX [Concomitant]
  2. TAGAMET [Concomitant]
  3. TIAZAC [Concomitant]
  4. AVANDIA [Suspect]
     Dosage: 4MG PER DAY
     Route: 048
     Dates: start: 20030620, end: 20060223
  5. NORVASC [Concomitant]
  6. ZOCOR [Concomitant]
  7. CELEBREX [Concomitant]
  8. NORVASC [Concomitant]
  9. HUMULIN R [Concomitant]
  10. ELAVIL [Concomitant]
  11. HYZAAR [Concomitant]

REACTIONS (2)
  - MYOCARDIAL INFARCTION [None]
  - CARDIAC FAILURE CONGESTIVE [None]
